FAERS Safety Report 5254349-3 (Version None)
Quarter: 2007Q1

REPORT INFORMATION
  Report Type: 
  Country: None (occurrence: None)
  Receive Date: 20070302
  Receipt Date: 20070223
  Transmission Date: 20070707
  Serious: Yes (Death)
  Sender: FDA-Public Use
  Company Number: US-JNJFOC-20061003399

PATIENT
  Sex: Male

DRUGS (4)
  1. DURAGESIC [Suspect]
  2. DURAGESIC [Suspect]
  3. DURAGESIC [Suspect]
     Indication: PAIN
  4. CODEINE [Concomitant]
     Indication: DRUG USE FOR UNKNOWN INDICATION

REACTIONS (2)
  - NARCOTIC INTOXICATION [None]
  - OVERDOSE [None]
